FAERS Safety Report 17052027 (Version 6)
Quarter: 2020Q4

REPORT INFORMATION
  Report Type: Report from Study
  Country: US (occurrence: US)
  Receive Date: 20191120
  Receipt Date: 20201209
  Transmission Date: 20210113
  Serious: Yes (Hospitalization, Other)
  Sender: FDA-Public Use
  Company Number: NVSC2019US042004

PATIENT
  Age: 65 Year
  Sex: Female

DRUGS (1)
  1. ENTRESTO [Suspect]
     Active Substance: SACUBITRIL\VALSARTAN
     Indication: CARDIAC FAILURE
     Dosage: 100 MG (49/51 MG(49 MG)), BID
     Route: 048
     Dates: start: 2019

REACTIONS (11)
  - Pneumonia [Recovering/Resolving]
  - Nasal congestion [Not Recovered/Not Resolved]
  - Chronic obstructive pulmonary disease [Recovering/Resolving]
  - Hyperkalaemia [Recovering/Resolving]
  - Vomiting [Unknown]
  - Renal impairment [Unknown]
  - Oropharyngeal pain [Unknown]
  - Fall [Unknown]
  - Malaise [Unknown]
  - Acute respiratory failure [Recovering/Resolving]
  - Aphonia [Not Recovered/Not Resolved]

NARRATIVE: CASE EVENT DATE: 2019
